FAERS Safety Report 18081761 (Version 1)
Quarter: 2020Q3

REPORT INFORMATION
  Report Type: Spontaneous
  Country: US (occurrence: US)
  Receive Date: 20200728
  Receipt Date: 20200728
  Transmission Date: 20201103
  Serious: Yes (Hospitalization)
  Sender: FDA-Public Use
  Company Number: US-ROCHE-2613112

PATIENT
  Sex: Female

DRUGS (20)
  1. ESBRIET [Suspect]
     Active Substance: PIRFENIDONE
     Dosage: TAKE 3 TABLET 3 TIMES A DAY FOR WEEK 3
     Route: 048
  2. GLUCOSAMINE [Concomitant]
     Active Substance: GLUCOSAMINE
  3. ESBRIET [Suspect]
     Active Substance: PIRFENIDONE
     Indication: BLADDER CANCER
     Dosage: TAKE 2 TABLET 3 TIMES A DAY FOR WEEK 2
     Route: 048
  4. METOPROLOLSUCCINAT [Concomitant]
     Active Substance: METOPROLOL SUCCINATE
     Dosage: METOPROLOL S TB2
  5. MUCINEX DM [Concomitant]
     Active Substance: DEXTROMETHORPHAN HYDROBROMIDE\GUAIFENESIN
     Dosage: MUCINEX DM M TB1?DOSE : 60?1200M
  6. YEAST [Concomitant]
     Active Substance: YEAST
     Dosage: RE YEAST RI
  7. ESBRIET [Suspect]
     Active Substance: PIRFENIDONE
     Indication: IDIOPATHIC PULMONARY FIBROSIS
     Dosage: TAKE 1 TABLET 3 TIMES A DAY FOR 1 WEEK
     Route: 048
     Dates: start: 202005
  8. BIOTIN [Concomitant]
     Active Substance: BIOTIN
     Dosage: DOSE : 5000 MCG
  9. CRANBERRY. [Concomitant]
     Active Substance: CRANBERRY
     Dosage: CRANBERRY POW
  10. FLONASE [Concomitant]
     Active Substance: FLUTICASONE PROPIONATE
     Dosage: DOSE : 50MCG/ACT
  11. SUMATRIPTAN. [Concomitant]
     Active Substance: SUMATRIPTAN
  12. LORATADINE. [Concomitant]
     Active Substance: LORATADINE
  13. SERTRALINE HYDROCHLORIDE. [Concomitant]
     Active Substance: SERTRALINE HYDROCHLORIDE
     Dosage: SERTRALINE H
  14. TYLENOL EXTRA STRENGTH [Concomitant]
     Active Substance: ACETAMINOPHEN
  15. CALCIUM [Concomitant]
     Active Substance: CALCIUM
  16. DOCUSATE SOD [Concomitant]
  17. FISH OIL [Concomitant]
     Active Substance: FISH OIL
  18. OMEPRAZOLE. [Concomitant]
     Active Substance: OMEPRAZOLE
     Dosage: OMEPRAZOLE CPD
  19. ASPIRIN. [Concomitant]
     Active Substance: ASPIRIN
  20. VITAMIN C [Concomitant]
     Active Substance: ASCORBIC ACID

REACTIONS (11)
  - Eye irritation [Not Recovered/Not Resolved]
  - Decreased appetite [Not Recovered/Not Resolved]
  - Dehydration [Recovered/Resolved]
  - Diarrhoea [Recovered/Resolved]
  - Nausea [Recovered/Resolved]
  - Mood swings [Not Recovered/Not Resolved]
  - Dyspnoea [Not Recovered/Not Resolved]
  - Dizziness [Not Recovered/Not Resolved]
  - Insomnia [Not Recovered/Not Resolved]
  - Onychoclasis [Not Recovered/Not Resolved]
  - Asthenia [Not Recovered/Not Resolved]
